FAERS Safety Report 25807304 (Version 1)
Quarter: 2025Q3

REPORT INFORMATION
  Report Type: Spontaneous
  Country: US (occurrence: US)
  Receive Date: 20250916
  Receipt Date: 20250916
  Transmission Date: 20251020
  Serious: No
  Sender: ROCHE
  Company Number: US-ROCHE-10000387027

PATIENT
  Age: 80 Year
  Sex: Male

DRUGS (5)
  1. FARICIMAB [Suspect]
     Active Substance: FARICIMAB
     Indication: Neovascular age-related macular degeneration
     Route: 050
     Dates: start: 2022
  2. FARICIMAB [Suspect]
     Active Substance: FARICIMAB
     Indication: Choroidal neovascularisation
  3. AFLIBERCEPT [Suspect]
     Active Substance: AFLIBERCEPT
     Indication: Subretinal fluid
     Route: 050
  4. VANCOMYCIN [Concomitant]
     Active Substance: VANCOMYCIN
  5. CEFTAZIDIME [Concomitant]
     Active Substance: CEFTAZIDIME

REACTIONS (1)
  - Eye inflammation [Recovered/Resolved]
